FAERS Safety Report 8403772-4 (Version None)
Quarter: 2012Q2

REPORT INFORMATION
  Report Type: 
  Country: None (occurrence: None)
  Receive Date: 20120601
  Receipt Date: 20110829
  Transmission Date: 20120825
  Serious: No
  Sender: FDA-Public Use
  Company Number: US-NOVEN-11US003074

PATIENT
  Sex: Male
  Weight: 24.49 kg

DRUGS (2)
  1. DAYTRANA [Suspect]
     Dosage: 15 MG, QD, 9 HOURS
     Route: 062
     Dates: start: 20110601
  2. DAYTRANA [Suspect]
     Indication: ATTENTION DEFICIT/HYPERACTIVITY DISORDER
     Dosage: 15 MG, QD, 9 HOURS
     Route: 062
     Dates: start: 20110825

REACTIONS (5)
  - WRONG TECHNIQUE IN DRUG USAGE PROCESS [None]
  - PRODUCT QUALITY ISSUE [None]
  - APPLICATION SITE ERYTHEMA [None]
  - DRUG PRESCRIBING ERROR [None]
  - DRUG ADMINISTERED AT INAPPROPRIATE SITE [None]
